FAERS Safety Report 7982706-0 (Version None)
Quarter: 2011Q4

REPORT INFORMATION
  Report Type: 
  Country: None (occurrence: None)
  Receive Date: 20111215
  Receipt Date: 20111207
  Transmission Date: 20120403
  Serious: Yes (Hospitalization)
  Sender: FDA-Public Use
  Company Number: IT-SANOFI-AVENTIS-2011SA080480

PATIENT
  Age: 49 Year
  Sex: Female

DRUGS (2)
  1. OXALIPLATIN [Suspect]
     Dosage: 17TH COURSE
     Route: 041
     Dates: start: 20090101, end: 20090101
  2. OXALIPLATIN [Suspect]
     Indication: COLORECTAL CANCER METASTATIC
     Dosage: 1-4 CYCLE, 13-16 COURSE
     Route: 041
     Dates: start: 20090101

REACTIONS (18)
  - BLOOD FIBRINOGEN DECREASED [None]
  - ALANINE AMINOTRANSFERASE INCREASED [None]
  - INTERNATIONAL NORMALISED RATIO INCREASED [None]
  - ANAEMIA [None]
  - FIBRIN D DIMER INCREASED [None]
  - BLOOD LACTATE DEHYDROGENASE INCREASED [None]
  - HEPATIC FAILURE [None]
  - ASPARTATE AMINOTRANSFERASE INCREASED [None]
  - HAEMOLYTIC URAEMIC SYNDROME [None]
  - HAEMATURIA [None]
  - UPPER GASTROINTESTINAL HAEMORRHAGE [None]
  - HAPTOGLOBIN DECREASED [None]
  - BACK PAIN [None]
  - RENAL FAILURE ACUTE [None]
  - BLOOD BILIRUBIN UNCONJUGATED INCREASED [None]
  - COOMBS TEST POSITIVE [None]
  - BLOOD CREATININE INCREASED [None]
  - THROMBOCYTOPENIA [None]
